FAERS Safety Report 7503096-3 (Version None)
Quarter: 2011Q2

REPORT INFORMATION
  Report Type: 
  Country: None (occurrence: None)
  Receive Date: 20110525
  Receipt Date: 20101020
  Transmission Date: 20111010
  Serious: No
  Sender: FDA-Public Use
  Company Number: US-NOVEN-ALL1-2010-05464

PATIENT
  Sex: Male

DRUGS (3)
  1. DAYTRANA [Suspect]
     Dosage: 10 MG, 1X/DAY:QD
     Route: 048
     Dates: start: 20100927
  2. DAYTRANA [Suspect]
  3. ABILIFY [Concomitant]
     Dosage: 2 MG, UNKNOWN
     Route: 048

REACTIONS (3)
  - APPLICATION SITE EROSION [None]
  - DRUG ADMINISTERED AT INAPPROPRIATE SITE [None]
  - OFF LABEL USE [None]
